FAERS Safety Report 16170864 (Version 1)
Quarter: 2019Q2

REPORT INFORMATION
  Report Type: Spontaneous
  Country: US (occurrence: US)
  Receive Date: 20190408
  Receipt Date: 20190408
  Transmission Date: 20190711
  Serious: Yes (Hospitalization)
  Sender: FDA-Public Use
  Company Number: US-ELEFSEE PHARMACEUTICALS INTERNATIONAL-US-2019WTD000028

PATIENT
  Age: 65 Year
  Sex: Female
  Weight: 48 kg

DRUGS (5)
  1. KETOROLAC [Concomitant]
     Active Substance: KETOROLAC\KETOROLAC TROMETHAMINE
     Indication: POSTOPERATIVE ANALGESIA
     Dosage: 15 MG, UNK
     Route: 042
  2. FENTANYL. [Suspect]
     Active Substance: FENTANYL
     Dosage: 50 MCG, UNK
     Route: 042
  3. FENTANYL. [Suspect]
     Active Substance: FENTANYL
     Dosage: FOUR 25-MCG FENTANYL BOLUSES
     Route: 042
  4. BUPIVACAINE. [Suspect]
     Active Substance: BUPIVACAINE
     Indication: POSTOPERATIVE ANALGESIA
     Dosage: 25 ML, UNK (MIXTURE OF 30 ML OF 0.25% BUPIVACAINE AND 20 ML OF 1.3% LIPOSOMAL BUPIVACAINE)
  5. FENTANYL. [Suspect]
     Active Substance: FENTANYL
     Indication: POSTOPERATIVE ANALGESIA
     Dosage: 25 MCG, UNK
     Route: 042

REACTIONS (2)
  - Respiratory acidosis [Recovering/Resolving]
  - Overdose [Unknown]
